FAERS Safety Report 24758618 (Version 1)
Quarter: 2024Q4

REPORT INFORMATION
  Report Type: Spontaneous
  Country: US (occurrence: None)
  Receive Date: 20241219
  Receipt Date: 20241219
  Transmission Date: 20250114
  Serious: Yes (Hospitalization)
  Sender: Public
  Company Number: None

PATIENT
  Sex: Female

DRUGS (11)
  1. HYRIMOZ [Suspect]
     Active Substance: ADALIMUMAB-ADAZ
  2. SPRYCEL [Suspect]
     Active Substance: DASATINIB
  3. NOVALIN [Concomitant]
  4. JARDIANCE [Concomitant]
     Active Substance: EMPAGLIFLOZIN
  5. AMLODIPINE BESYLATE [Concomitant]
     Active Substance: AMLODIPINE BESYLATE
  6. HYRIMOZ [Concomitant]
     Active Substance: ADALIMUMAB-ADAZ
  7. LOVOTHYROSINE SODIUM [Concomitant]
  8. HYRIMOZ [Concomitant]
     Active Substance: ADALIMUMAB-ADAZ
  9. CRESTOR [Concomitant]
     Active Substance: ROSUVASTATIN CALCIUM
  10. ZOLOFT [Concomitant]
     Active Substance: SERTRALINE HYDROCHLORIDE
  11. SPRYCEL [Concomitant]
     Active Substance: DASATINIB

REACTIONS (1)
  - Cardiac failure congestive [None]
